FAERS Safety Report 20127713 (Version 1)
Quarter: 2021Q4

REPORT INFORMATION
  Report Type: Spontaneous
  Country: US (occurrence: US)
  Receive Date: 20211129
  Receipt Date: 20211129
  Transmission Date: 20220303
  Serious: Yes (Life-Threatening, Hospitalization)
  Sender: FDA-Public Use
  Company Number: US-MYLANLABS-2021M1086655

PATIENT
  Age: 6 Decade
  Sex: Female

DRUGS (11)
  1. LIDOCAINE [Suspect]
     Active Substance: LIDOCAINE
     Indication: Local anaesthesia
     Dosage: 200 MILLIGRAM, LOCAL INFILTRATION A LOCAL INFILTRATION OF 1% LIDOCAINE 20ML (200MG)??
  2. LIDOCAINE [Suspect]
     Active Substance: LIDOCAINE
     Dosage: LIDOCAINE WAS GIVEN WITH FREQUENT ASPIRATION AND INCREMENTAL INJECTION.
  3. LIDOCAINE [Suspect]
     Active Substance: LIDOCAINE
     Indication: Local anaesthesia
     Dosage: 3 MILLILITER
     Route: 008
  4. BUPIVACAINE [Suspect]
     Active Substance: BUPIVACAINE
     Indication: Local anaesthesia
     Dosage: 8 MILLILITER
     Route: 008
  5. LIDOCAINE [Suspect]
     Active Substance: LIDOCAINE
     Indication: Local anaesthesia
     Dosage: 2 MILLILITER
     Route: 061
  6. NOREPINEPHRINE [Suspect]
     Active Substance: NOREPINEPHRINE
     Indication: Circulatory collapse
     Dosage: 0.3 MICROGRAM/KILOGRAM, QMINUTE
     Route: 065
  7. EPINEPHRINE [Suspect]
     Active Substance: EPINEPHRINE
     Indication: Circulatory collapse
     Dosage: 0.2 MICROGRAM/KILOGRAM, QMINUTE
     Route: 065
  8. DOBUTAMINE [Suspect]
     Active Substance: DOBUTAMINE HYDROCHLORIDE
     Indication: Circulatory collapse
     Dosage: 10 MICROGRAM/KILOGRAM, QMINUTE
     Route: 065
  9. VASOPRESSIN [Suspect]
     Active Substance: VASOPRESSIN
     Indication: Circulatory collapse
     Dosage: 0.04 INTERNATIONAL UNIT, QMINUTE
     Route: 065
  10. EPINEPHRINE [Concomitant]
     Active Substance: EPINEPHRINE
     Indication: Product used for unknown indication
     Dosage: ALONG WITH LIDOCAINE
     Route: 008
  11. IOHEXOL [Concomitant]
     Active Substance: IOHEXOL
     Indication: Product used for unknown indication
     Dosage: 1 MILLILITER, 1 ML OF 180 MG IODINE/ ML
     Route: 008

REACTIONS (5)
  - Local anaesthetic systemic toxicity [Recovered/Resolved]
  - Respiratory failure [Recovered/Resolved]
  - Bundle branch block left [Recovered/Resolved]
  - Circulatory collapse [Recovered/Resolved]
  - Drug ineffective [Unknown]
